FAERS Safety Report 4989781-6 (Version None)
Quarter: 2006Q2

REPORT INFORMATION
  Report Type: 
  Country: None (occurrence: None)
  Receive Date: 20060501
  Receipt Date: 20060420
  Transmission Date: 20061013
  Serious: Yes (Hospitalization)
  Sender: FDA-Public Use
  Company Number: TCI2005A02491

PATIENT
  Age: 81 Year
  Sex: Male

DRUGS (2)
  1. LEUPROLIDE ACETATE [Suspect]
     Indication: PROSTATE CANCER
     Dosage: 11.25 MG (11.25 MG, 1 IN 12 WK) SUBCUTANEOUS
     Route: 058
     Dates: start: 20050316, end: 20050621
  2. LEUPLIN FOR INJECTION KIT3.75 (LEUPRORELIN ACETATE FOR DEPOTSUSPENSION [Suspect]
     Dosage: 3.75 MG (3.75 MG, 1 IN 28 D) SUBCUTANEOUS
     Route: 058
     Dates: start: 20050215, end: 20050215

REACTIONS (1)
  - ANAEMIA [None]
